FAERS Safety Report 25163544 (Version 1)
Quarter: 2025Q2

REPORT INFORMATION
  Report Type: Report from Study
  Country: BG (occurrence: BG)
  Receive Date: 20250405
  Receipt Date: 20250405
  Transmission Date: 20250716
  Serious: Yes (Death, Other)
  Sender: ABBVIE
  Company Number: BG-ABBVIE-6212734

PATIENT
  Age: 83 Year
  Sex: Female

DRUGS (1)
  1. HUMIRA [Suspect]
     Active Substance: ADALIMUMAB
     Indication: Psoriatic arthropathy
     Route: 058
     Dates: start: 201709

REACTIONS (1)
  - Death [Fatal]
